FAERS Safety Report 15601463 (Version 1)
Quarter: 2018Q4

REPORT INFORMATION
  Report Type: Spontaneous
  Country: US (occurrence: US)
  Receive Date: 20181109
  Receipt Date: 20181109
  Transmission Date: 20190205
  Serious: No
  Sender: FDA-Public Use
  Company Number: US-009507513-1810USA007465

PATIENT
  Sex: Female
  Weight: 47.62 kg

DRUGS (5)
  1. VYTORIN [Suspect]
     Active Substance: EZETIMIBE\SIMVASTATIN
     Indication: BLOOD CHOLESTEROL
     Dosage: 1 TABLET (10/80 MILLIGRAM), QD
     Route: 048
  2. LOSARTAN. [Concomitant]
     Active Substance: LOSARTAN
  3. VYTORIN [Suspect]
     Active Substance: EZETIMIBE\SIMVASTATIN
     Dosage: 0.5 TABLET (10/80 MILLIGRAM)
     Route: 048
  4. ATENOLOL. [Concomitant]
     Active Substance: ATENOLOL
  5. ELIQUIS [Concomitant]
     Active Substance: APIXABAN

REACTIONS (4)
  - Intentional product misuse [Unknown]
  - Muscle spasms [Not Recovered/Not Resolved]
  - Incorrect product administration duration [Unknown]
  - Wrong technique in product usage process [Unknown]
